FAERS Safety Report 21379313 (Version 2)
Quarter: 2022Q4

REPORT INFORMATION
  Report Type: Spontaneous
  Country: US (occurrence: US)
  Receive Date: 20220927
  Receipt Date: 20221202
  Transmission Date: 20230113
  Serious: No
  Sender: FDA-Public Use
  Company Number: US-MACLEODS PHARMACEUTICALS US LTD-MAC2022037299

PATIENT

DRUGS (3)
  1. TRIAMCINOLONE [Suspect]
     Active Substance: TRIAMCINOLONE
     Indication: Skin depigmentation
     Dosage: UNK; 2X/DAY FOR TWO WEEKS AND THEN ONE WEEK OFF AND THEN AGAIN 2X/DAY (NDC 33342-329-15)
     Route: 065
  2. KETOCONAZOLE [Suspect]
     Active Substance: KETOCONAZOLE
     Indication: Skin depigmentation
     Dosage: UNK; 2X/DAY FOR TWO WEEKS AND THEN ONE WEEK OFF AND THEN AGAIN 2X/DAY FOR TWO WEEKS (NDC 21922-025-0
     Route: 065
  3. VITAMINS [Concomitant]
     Active Substance: VITAMINS
     Indication: Product used for unknown indication
     Dosage: UNK
     Route: 065

REACTIONS (1)
  - Alopecia [Not Recovered/Not Resolved]

NARRATIVE: CASE EVENT DATE: 20220101
